FAERS Safety Report 10291268 (Version 2)
Quarter: 2014Q3

REPORT INFORMATION
  Report Type: Spontaneous
  Country: CA (occurrence: CA)
  Receive Date: 20140710
  Receipt Date: 20140710
  Transmission Date: 20150326
  Serious: Yes (Death, Hospitalization, Other)
  Sender: FDA-Public Use
  Company Number: CA-AMGEN-CANSP2014045259

PATIENT
  Age: 78 Year
  Sex: Female

DRUGS (21)
  1. CALCIUM                            /00060701/ [Concomitant]
     Active Substance: CALCIUM
     Dosage: 500 MG, BID
  2. VITAMIN D                          /00107901/ [Concomitant]
     Active Substance: ERGOCALCIFEROL
     Dosage: 2000 IU, QD
  3. FRAGMIN [Concomitant]
     Active Substance: DALTEPARIN SODIUM
  4. ACTONEL [Concomitant]
     Active Substance: RISEDRONATE SODIUM
     Dosage: UNK UNK, QWK
  5. PLAQUENIL [Concomitant]
     Active Substance: HYDROXYCHLOROQUINE SULFATE
     Dosage: 200 MG, BID
  6. HYDROXYCHLOROQUINE [Concomitant]
     Active Substance: HYDROXYCHLOROQUINE
     Dosage: 200 MG, 3 TIMES/WK
     Route: 048
  7. DICLOFENAC                         /00372302/ [Concomitant]
     Dosage: UNK UNK, AS NECESSARY
  8. ADVAIR HFA [Concomitant]
     Active Substance: FLUTICASONE PROPIONATE\SALMETEROL XINAFOATE
  9. APO-DICLO                          /00372302/ [Concomitant]
     Dosage: 25 MG, TID
  10. LASIX [Concomitant]
     Active Substance: FUROSEMIDE
     Dosage: 20 MG, QD
  11. SPIRIVA [Concomitant]
     Active Substance: TIOTROPIUM BROMIDE MONOHYDRATE
     Dosage: 18 MUG, QD
     Route: 055
  12. SINTROM [Concomitant]
     Active Substance: ACENOCOUMAROL
     Indication: ANTICOAGULANT THERAPY
  13. ASPIRIN. [Concomitant]
     Active Substance: ASPIRIN
     Dosage: 81 MG, QD
     Route: 048
  14. COENZYME [Concomitant]
     Dosage: 60 MG, QD
  15. PROLIA [Suspect]
     Active Substance: DENOSUMAB
     Indication: OSTEOPOROSIS POSTMENOPAUSAL
     Dosage: 60 MG, UNK
     Route: 065
     Dates: start: 20101015
  16. HYDROXYCHLOROQUINE [Concomitant]
     Active Substance: HYDROXYCHLOROQUINE
     Dosage: 400 MG, 4 TIMES/WK
     Route: 048
  17. TRENTAL [Concomitant]
     Active Substance: PENTOXIFYLLINE
     Dosage: 400 MG, TID
  18. METOPROLOL                         /00376902/ [Concomitant]
     Active Substance: METOPROLOL
     Dosage: 50 MG, BID
     Route: 048
  19. VENTOLIN [Concomitant]
     Active Substance: ALBUTEROL SULFATE
     Dosage: UNK UNK, AS NECESSARY
  20. THYROXINE [Concomitant]
     Active Substance: LEVOTHYROXINE
     Dosage: 0.1 MG, QD
     Route: 048
  21. PANTOLOC                           /01263204/ [Concomitant]
     Active Substance: PANTOPRAZOLE SODIUM
     Dosage: 40 MG, QD
     Route: 048

REACTIONS (20)
  - Wound infection [Fatal]
  - Atrophy [Unknown]
  - Pulmonary hypertension [Unknown]
  - Scleroderma [Unknown]
  - Urinary tract infection [Unknown]
  - Aortic valve stenosis [Unknown]
  - Dyspnoea [Unknown]
  - Mobility decreased [Unknown]
  - Tenosynovitis [Unknown]
  - Arthritis [Unknown]
  - Blood creatinine increased [Unknown]
  - Pulmonary valve stenosis [Fatal]
  - Hypoxia [Fatal]
  - Mouth ulceration [Unknown]
  - Joint effusion [Unknown]
  - Telangiectasia [Unknown]
  - Weight decreased [Fatal]
  - Infection [Unknown]
  - Skin tightness [Unknown]
  - Oesophageal disorder [Unknown]
